FAERS Safety Report 15752902 (Version 1)
Quarter: 2018Q4

REPORT INFORMATION
  Report Type: Spontaneous
  Country: IT (occurrence: IT)
  Receive Date: 20181221
  Receipt Date: 20181221
  Transmission Date: 20190205
  Serious: Yes (Hospitalization)
  Sender: FDA-Public Use
  Company Number: IT-TEVA-2018-IT-989738

PATIENT
  Age: 54 Year
  Sex: Female

DRUGS (3)
  1. MEDROL [Concomitant]
     Active Substance: METHYLPREDNISOLONE
  2. RANITIDINE. [Concomitant]
     Active Substance: RANITIDINE
  3. AMOXICILLIN. [Suspect]
     Active Substance: AMOXICILLIN
     Indication: PERIODONTITIS
     Route: 048
     Dates: start: 20180912, end: 20180916

REACTIONS (1)
  - Laryngitis [Not Recovered/Not Resolved]

NARRATIVE: CASE EVENT DATE: 20180917
